FAERS Safety Report 6120841-2 (Version None)
Quarter: 2009Q1

REPORT INFORMATION
  Report Type: 
  Country: None (occurrence: None)
  Receive Date: 20090313
  Receipt Date: 20090226
  Transmission Date: 20090719
  Serious: Yes (Hospitalization, Other)
  Sender: FDA-Public Use
  Company Number: 2009S1003651

PATIENT
  Age: 92 Year
  Sex: Female
  Weight: 85 kg

DRUGS (9)
  1. FUROSEMIDE [Suspect]
     Indication: RENAL FAILURE
     Dosage: 40 MG; DAILY; ORAL
     Route: 048
  2. SPIRONOLACTONE [Suspect]
     Indication: HYPERTENSION
     Dosage: 25 MG; DAILY; ORAL
     Route: 048
  3. ENOXAPARIN SODIUM [Suspect]
     Indication: PULMONARY EMBOLISM
     Dosage: 20 MG; DAILY; SUBCUTANEOUS
     Route: 058
     Dates: end: 20081030
  4. ARICEPT [Concomitant]
  5. ATACAND [Concomitant]
  6. EUNERPAN [Concomitant]
  7. NULYTELY [Concomitant]
  8. NORVASC [Concomitant]
  9. PANTOZOL [Concomitant]

REACTIONS (3)
  - ANAEMIA [None]
  - HYPERKALAEMIA [None]
  - HYPONATRAEMIA [None]
